FAERS Safety Report 10272720 (Version 1)
Quarter: 2014Q3

REPORT INFORMATION
  Report Type: Spontaneous
  Country: US (occurrence: US)
  Receive Date: 20140702
  Receipt Date: 20140702
  Transmission Date: 20150326
  Serious: No
  Sender: FDA-Public Use
  Company Number: US-009507513-1406USA005473

PATIENT
  Age: 3 Year
  Sex: Female
  Weight: 19.5 kg

DRUGS (1)
  1. CLARITIN [Suspect]
     Active Substance: LORATADINE
     Indication: PRODUCT USED FOR UNKNOWN INDICATION
     Dosage: UNK, UNKNOWN
     Route: 048
     Dates: start: 20140531

REACTIONS (2)
  - Accidental exposure to product by child [Unknown]
  - Overdose [Unknown]

NARRATIVE: CASE EVENT DATE: 20140531
